FAERS Safety Report 17196504 (Version 5)
Quarter: 2021Q3

REPORT INFORMATION
  Report Type: Spontaneous
  Country: US (occurrence: US)
  Receive Date: 20191224
  Receipt Date: 20210907
  Transmission Date: 20211014
  Serious: No
  Sender: FDA-Public Use
  Company Number: US-VERTEX PHARMACEUTICALS-2019-012877

PATIENT
  Age: 17 Year
  Sex: Male
  Weight: 54 kg

DRUGS (1)
  1. TRIKAFTA [Suspect]
     Active Substance: ELEXACAFTOR\IVACAFTOR\TEZACAFTOR
     Indication: CYSTIC FIBROSIS
     Dosage: 2 ORANGE TABS IN MORNING; 1 BLUE TAB IN EVENING
     Route: 048
     Dates: start: 20191125

REACTIONS (5)
  - Pain [Recovered/Resolved]
  - Viral infection [Recovered/Resolved]
  - Weight gain poor [Recovering/Resolving]
  - Productive cough [Recovered/Resolved]
  - Sneezing [Not Recovered/Not Resolved]

NARRATIVE: CASE EVENT DATE: 201911
